FAERS Safety Report 19609413 (Version 1)
Quarter: 2021Q3

REPORT INFORMATION
  Report Type: Spontaneous
  Country: US (occurrence: US)
  Receive Date: 20210726
  Receipt Date: 20210726
  Transmission Date: 20211014
  Serious: No
  Sender: FDA-Public Use
  Company Number: None

PATIENT
  Age: 63 Year
  Sex: Female
  Weight: 103.5 kg

DRUGS (7)
  1. HCT [Concomitant]
     Active Substance: HYDROCHLOROTHIAZIDE
  2. CLARITIN [Concomitant]
     Active Substance: LORATADINE
  3. FISH OIL [Concomitant]
     Active Substance: FISH OIL
  4. LOPERAMIDE [Concomitant]
     Active Substance: LOPERAMIDE
  5. LOSARATIN [Concomitant]
  6. VITAMIN B,C AND D [Concomitant]
  7. NEUTROGENA SUNSCREEN NOS [Suspect]
     Active Substance: AVOBENZONE\HOMOSALATE\OCTISALATE\OCTOCRYLENE OR AVOBENZONE\HOMOSALATE\OCTISALATE\OCTOCRYLENE\OXYBENZONE
     Indication: PROPHYLAXIS AGAINST SOLAR RADIATION
     Dosage: ?          OTHER ROUTE:ON THE SKIN?
     Dates: start: 20210525, end: 20210525

REACTIONS (4)
  - Application site pruritus [None]
  - Sensitive skin [None]
  - Application site erythema [None]
  - Application site pain [None]

NARRATIVE: CASE EVENT DATE: 20210525
